FAERS Safety Report 26216174 (Version 1)
Quarter: 2025Q4

REPORT INFORMATION
  Report Type: Report from Study
  Country: US (occurrence: US)
  Receive Date: 20251231
  Receipt Date: 20251231
  Transmission Date: 20260118
  Serious: No
  Sender: ACADIA PHARMACEUTICALS
  Company Number: US-ACADIA PHARMACEUTICALS INC.-ACA-2025-PIM-013628

PATIENT
  Age: 63 Year
  Sex: Male

DRUGS (20)
  1. NUPLAZID [Suspect]
     Active Substance: PIMAVANSERIN TARTRATE
     Indication: Parkinson^s disease
     Dosage: 34 MILLIGRAM, QD
     Route: 048
     Dates: start: 20251007, end: 20251208
  2. NUPLAZID [Suspect]
     Active Substance: PIMAVANSERIN TARTRATE
     Dosage: 34 MILLIGRAM, QD
     Route: 048
     Dates: start: 20251220
  3. RYTARY [Concomitant]
     Active Substance: CARBIDOPA\LEVODOPA
  4. TAMSULOSIN [Concomitant]
     Active Substance: TAMSULOSIN
  5. PRAZOSIN [Concomitant]
     Active Substance: PRAZOSIN
  6. FENOFIBRATE [Concomitant]
     Active Substance: FENOFIBRATE
  7. GEMTESA [Concomitant]
     Active Substance: VIBEGRON
  8. CLONAZEPAM [Concomitant]
     Active Substance: CLONAZEPAM
  9. MIRTAZAPINE [Concomitant]
     Active Substance: MIRTAZAPINE
  10. VENLAFAXINE [Concomitant]
     Active Substance: VENLAFAXINE HYDROCHLORIDE
  11. PREGABALIN [Concomitant]
     Active Substance: PREGABALIN
  12. RIVASTIGMINE [Concomitant]
     Active Substance: RIVASTIGMINE
     Dosage: 4.6MG/24HR
  13. FISH OIL [Concomitant]
     Active Substance: FISH OIL
  14. CETIRIZINE [Concomitant]
     Active Substance: CETIRIZINE HYDROCHLORIDE
  15. VITAMIN D3 [Concomitant]
     Active Substance: CHOLECALCIFEROL
  16. ATORVASTATIN [Concomitant]
     Active Substance: ATORVASTATIN
  17. ACETAMINOPHEN [Concomitant]
     Active Substance: ACETAMINOPHEN
  18. CARBOMER [Concomitant]
     Active Substance: CARBOMER
     Dosage: OPHTHALMIC DROP
  19. VITAMIN B COMPLEX [Concomitant]
     Active Substance: CYANOCOBALAMIN\DEXPANTHENOL\NIACINAMIDE\PYRIDOXINE HYDROCHLORIDE\RIBOFLAVIN 5^-PHOSPHATE SODIUM\THIA
  20. KETOCONAZOLE [Concomitant]
     Active Substance: KETOCONAZOLE

REACTIONS (4)
  - Diplopia [Not Recovered/Not Resolved]
  - Rash [Not Recovered/Not Resolved]
  - Disorientation [Not Recovered/Not Resolved]
  - Confusional state [Not Recovered/Not Resolved]

NARRATIVE: CASE EVENT DATE: 20251201
